FAERS Safety Report 15867062 (Version 1)
Quarter: 2019Q1

REPORT INFORMATION
  Report Type: Spontaneous
  Country: US (occurrence: US)
  Receive Date: 20190124
  Receipt Date: 20190124
  Transmission Date: 20190417
  Serious: Yes (Disabling)
  Sender: FDA-Public Use
  Company Number: None

PATIENT
  Age: 59 Year
  Sex: Female
  Weight: 72 kg

DRUGS (1)
  1. LEVOFLOXACIN. [Suspect]
     Active Substance: LEVOFLOXACIN
     Indication: DIVERTICULITIS

REACTIONS (7)
  - Joint swelling [None]
  - Balance disorder [None]
  - Rotator cuff syndrome [None]
  - Muscular weakness [None]
  - Gait disturbance [None]
  - Dysstasia [None]
  - Insomnia [None]

NARRATIVE: CASE EVENT DATE: 20130915
